FAERS Safety Report 25883107 (Version 4)
Quarter: 2025Q4

REPORT INFORMATION
  Report Type: Report from Study
  Country: US (occurrence: US)
  Receive Date: 20251006
  Receipt Date: 20251208
  Transmission Date: 20260117
  Serious: Yes (Other)
  Sender: ABBVIE
  Company Number: US-ABBVIE-6483839

PATIENT
  Age: 77 Year
  Sex: Female

DRUGS (1)
  1. SKYRIZI [Suspect]
     Active Substance: RISANKIZUMAB-RZAA
     Indication: Product used for unknown indication
     Route: 058
     Dates: start: 20240805, end: 2025

REACTIONS (12)
  - Cyst [Not Recovered/Not Resolved]
  - Spinal stenosis [Recovering/Resolving]
  - Nerve compression [Not Recovered/Not Resolved]
  - Pain in extremity [Not Recovered/Not Resolved]
  - Gait disturbance [Unknown]
  - Peripheral swelling [Unknown]
  - Pelvic fracture [Unknown]
  - Foot deformity [Unknown]
  - Fungal skin infection [Unknown]
  - Intervertebral disc degeneration [Recovering/Resolving]
  - Osteoporosis [Unknown]
  - Dysstasia [Unknown]

NARRATIVE: CASE EVENT DATE: 20250901
